FAERS Safety Report 4746146-X (Version None)
Quarter: 2005Q3

REPORT INFORMATION
  Report Type: 
  Country: None (occurrence: None)
  Receive Date: 20050816
  Receipt Date: 20050801
  Transmission Date: 20060218
  Serious: Yes (Hospitalization)
  Sender: FDA-Public Use
  Company Number: 2005BI007680

PATIENT
  Age: 60 Year
  Sex: Female
  Weight: 83.9154 kg

DRUGS (2)
  1. AVONEX [Suspect]
     Indication: MULTIPLE SCLEROSIS
     Dosage: 30 UG;;QW; IM
     Route: 030
     Dates: start: 20030101
  2. MEDICATION (NOS) [Concomitant]

REACTIONS (2)
  - SEPSIS [None]
  - URINARY TRACT INFECTION [None]
